FAERS Safety Report 7044699-2 (Version None)
Quarter: 2010Q4

REPORT INFORMATION
  Report Type: 
  Country: None (occurrence: None)
  Receive Date: 20101014
  Receipt Date: 20101006
  Transmission Date: 20110411
  Serious: Yes (Congenital Anomaly)
  Sender: FDA-Public Use
  Company Number: FR-SANOFI-AVENTIS-2010SA060249

PATIENT
  Age: 0 Day

DRUGS (2)
  1. PLAQUENIL [Suspect]
     Route: 064
     Dates: start: 20100429
  2. ASPIRIN [Suspect]
     Route: 064
     Dates: start: 20100429

REACTIONS (2)
  - CONGENITAL CYSTIC LUNG [None]
  - PULMONARY SEQUESTRATION [None]
